FAERS Safety Report 8043520-3 (Version None)
Quarter: 2012Q1

REPORT INFORMATION
  Report Type: 
  Country: None (occurrence: None)
  Receive Date: 20120112
  Receipt Date: 20111229
  Transmission Date: 20120608
  Serious: Yes (Hospitalization, Other)
  Sender: FDA-Public Use
  Company Number: AR-MEDIMMUNE-MEDI-0014318

PATIENT
  Sex: Female
  Weight: 4.8 kg

DRUGS (3)
  1. SYNAGIS [Suspect]
     Route: 030
     Dates: start: 20110728, end: 20110829
  2. VITAMIN ADC [Concomitant]
  3. FERROUS SULFATE TAB [Concomitant]

REACTIONS (5)
  - OXYGEN SATURATION DECREASED [None]
  - COUGH [None]
  - BRONCHIOLITIS [None]
  - CYANOSIS [None]
  - UPPER RESPIRATORY TRACT INFECTION [None]
